FAERS Safety Report 9106094 (Version 1)
Quarter: 2013Q1

REPORT INFORMATION
  Report Type: Spontaneous
  Country: US (occurrence: US)
  Receive Date: 20130221
  Receipt Date: 20130221
  Transmission Date: 20140127
  Serious: No
  Sender: FDA-Public Use
  Company Number: US-009507513-1302USA009025

PATIENT
  Sex: Female

DRUGS (2)
  1. JANUVIA [Suspect]
  2. GLIPIZIDE [Concomitant]

REACTIONS (1)
  - Blood glucose increased [Unknown]
